FAERS Safety Report 21356079 (Version 2)
Quarter: 2022Q4

REPORT INFORMATION
  Report Type: Spontaneous
  Country: RO (occurrence: RO)
  Receive Date: 20220920
  Receipt Date: 20221125
  Transmission Date: 20230112
  Serious: Yes (Other)
  Sender: FDA-Public Use
  Company Number: RO-002147023-NVSC2022RO205738

PATIENT
  Sex: Female
  Weight: 60 kg

DRUGS (1)
  1. XOLAIR [Suspect]
     Active Substance: OMALIZUMAB
     Indication: Product used for unknown indication
     Dosage: 300 MG, QMO, MOST RECENT DOSE ADMINISTERED ON /MAY/2022
     Route: 058
     Dates: start: 202203

REACTIONS (2)
  - Abdominal distension [Not Recovered/Not Resolved]
  - Constipation [Not Recovered/Not Resolved]

NARRATIVE: CASE EVENT DATE: 20220601
